FAERS Safety Report 5636699-1 (Version None)
Quarter: 2008Q1

REPORT INFORMATION
  Report Type: 
  Country: None (occurrence: None)
  Receive Date: 20080225
  Receipt Date: 20080218
  Transmission Date: 20080703
  Serious: Yes (Death, Life-Threatening, Hospitalization)
  Sender: FDA-Public Use
  Company Number: DE-ASTRAZENECA-2008PK00357

PATIENT
  Age: 30015 Day
  Sex: Male

DRUGS (10)
  1. SYMBICORT [Suspect]
     Indication: CHRONIC OBSTRUCTIVE PULMONARY DISEASE
     Dosage: TWO INHALATIONS BID
     Route: 055
     Dates: start: 20030319
  2. ALLOPURINOL [Suspect]
     Indication: HYPERURICAEMIA
     Route: 048
     Dates: start: 20030326, end: 20030430
  3. BRONCHORETARD [Suspect]
     Indication: CHRONIC OBSTRUCTIVE PULMONARY DISEASE
     Route: 048
     Dates: start: 20030319
  4. DECORTIN [Suspect]
     Indication: CHRONIC OBSTRUCTIVE PULMONARY DISEASE
     Dosage: 5-10 MG DAILY
     Route: 048
     Dates: start: 20030319
  5. EUNERPAN [Suspect]
     Indication: SLEEP DISORDER
     Route: 048
     Dates: start: 20030319
  6. BERODUAL DA [Suspect]
     Indication: CHRONIC OBSTRUCTIVE PULMONARY DISEASE
     Dosage: TWO INHALATIONS FOR TIMES DAILY
     Route: 055
     Dates: start: 20030319
  7. LASIX [Suspect]
     Indication: OEDEMA
     Route: 048
     Dates: start: 20030408
  8. DELIX PROTECT [Suspect]
     Indication: HYPERTENSION
     Route: 048
     Dates: start: 20030419
  9. CLEXANE [Concomitant]
     Indication: THROMBOSIS PROPHYLAXIS
     Route: 057
     Dates: start: 20030320, end: 20030415
  10. ZYLORIC [Concomitant]
     Indication: HYPERURICAEMIA
     Dates: start: 20030430

REACTIONS (2)
  - STEVENS-JOHNSON SYNDROME [None]
  - TOXIC EPIDERMAL NECROLYSIS [None]
